FAERS Safety Report 17448262 (Version 1)
Quarter: 2020Q1

REPORT INFORMATION
  Report Type: Spontaneous
  Country: FR (occurrence: FR)
  Receive Date: 20200223
  Receipt Date: 20200223
  Transmission Date: 20200409
  Serious: Yes (Hospitalization)
  Sender: FDA-Public Use
  Company Number: NVSC2020FR043863

PATIENT
  Age: 15 Year
  Sex: Female
  Weight: 43.6 kg

DRUGS (1)
  1. PARACETAMOL [Suspect]
     Active Substance: ACETAMINOPHEN
     Indication: POISONING DELIBERATE
     Dosage: 8000 MG
     Route: 048
     Dates: start: 20190721, end: 20190721

REACTIONS (2)
  - Somnolence [Recovered/Resolved]
  - Hypotonia [Recovered/Resolved]

NARRATIVE: CASE EVENT DATE: 20190721
